FAERS Safety Report 24384333 (Version 2)
Quarter: 2024Q4

REPORT INFORMATION
  Report Type: Spontaneous
  Country: PT (occurrence: PT)
  Receive Date: 20241001
  Receipt Date: 20241014
  Transmission Date: 20250114
  Serious: Yes (Life-Threatening, Other)
  Sender: AMERICAN REGENT
  Company Number: PT-AMERICAN REGENT INC-2024003661

PATIENT
  Age: 35 Year
  Sex: Female

DRUGS (1)
  1. VENOFER [Suspect]
     Active Substance: IRON SUCROSE
     Indication: Iron deficiency anaemia
     Dosage: 300 MG, I.E. 3 VIALS OF IRON IN 250 ML OF SODIUM CHLORIDE IN A SINGLE DOSE, INFUSION OF 1 HR 10 MIN
     Dates: start: 20240903, end: 20240903

REACTIONS (3)
  - Rash [Recovered/Resolved]
  - Burning sensation [Recovered/Resolved]
  - Product preparation issue [Unknown]

NARRATIVE: CASE EVENT DATE: 20240903
